FAERS Safety Report 6703881-1 (Version None)
Quarter: 2010Q2

REPORT INFORMATION
  Report Type: 
  Country: None (occurrence: None)
  Receive Date: 20100430
  Receipt Date: 20100422
  Transmission Date: 20101027
  Serious: Yes (Other)
  Sender: FDA-Public Use
  Company Number: ES-ROCHE-698979

PATIENT
  Age: 76 Year
  Sex: Male

DRUGS (1)
  1. BONIVA [Suspect]
     Indication: KNEE ARTHROPLASTY
     Dosage: ROUTE: PER OS
     Route: 048

REACTIONS (2)
  - FALL [None]
  - GAIT DISTURBANCE [None]
